FAERS Safety Report 15334711 (Version 3)
Quarter: 2018Q4

REPORT INFORMATION
  Report Type: Spontaneous
  Country: US (occurrence: US)
  Receive Date: 20180830
  Receipt Date: 20181116
  Transmission Date: 20190204
  Serious: No
  Sender: FDA-Public Use
  Company Number: PHEH2018US035164

PATIENT
  Age: 63 Year
  Sex: Female

DRUGS (3)
  1. CYCLOSPORINE. [Concomitant]
     Active Substance: CYCLOSPORINE
     Indication: PRODUCT USED FOR UNKNOWN INDICATION
     Dosage: UNK
     Route: 065
  2. PROMACTA [Suspect]
     Active Substance: ELTROMBOPAG OLAMINE
     Indication: APLASTIC ANAEMIA
     Dosage: 150 MG, QD
     Route: 048
     Dates: start: 20180512, end: 20180817
  3. PROMACTA [Suspect]
     Active Substance: ELTROMBOPAG OLAMINE
     Dosage: 2 DF, QD
     Route: 048
     Dates: start: 20180715

REACTIONS (3)
  - Hair growth abnormal [Unknown]
  - Rash [Unknown]
  - Gingival swelling [Unknown]

NARRATIVE: CASE EVENT DATE: 20180820
